FAERS Safety Report 24558170 (Version 1)
Quarter: 2024Q4

REPORT INFORMATION
  Report Type: Report from Study
  Country: US (occurrence: US)
  Receive Date: 20241028
  Receipt Date: 20241028
  Transmission Date: 20250115
  Serious: Yes (Hospitalization)
  Sender: ABBVIE
  Company Number: US-ABBVIE-5975657

PATIENT
  Sex: Female

DRUGS (4)
  1. SKYRIZI [Suspect]
     Active Substance: RISANKIZUMAB-RZAA
     Indication: Psoriasis
     Dosage: DOSE: 150 MG WEEK 0
     Route: 058
     Dates: start: 20240627, end: 20240627
  2. SKYRIZI [Suspect]
     Active Substance: RISANKIZUMAB-RZAA
     Dosage: DOSE: 150 MG WEEK 4
     Route: 058
     Dates: start: 20240726, end: 20240726
  3. SKYRIZI [Suspect]
     Active Substance: RISANKIZUMAB-RZAA
     Dosage: DOSE FREQUENCY: 150 MG  SKYRIZI WAS ONGOING
     Route: 058
     Dates: start: 20241018
  4. HYDROCODONE [Concomitant]
     Active Substance: HYDROCODONE
     Indication: Product used for unknown indication

REACTIONS (5)
  - Tibia fracture [Recovering/Resolving]
  - Rhinovirus infection [Recovered/Resolved]
  - Chills [Recovered/Resolved]
  - Road traffic accident [Unknown]
  - Hyperhidrosis [Recovered/Resolved]

NARRATIVE: CASE EVENT DATE: 20240101
